FAERS Safety Report 17021333 (Version 1)
Quarter: 2019Q4

REPORT INFORMATION
  Report Type: Spontaneous
  Country: FR (occurrence: FR)
  Receive Date: 20191112
  Receipt Date: 20191112
  Transmission Date: 20200122
  Serious: Yes (Hospitalization)
  Sender: FDA-Public Use
  Company Number: FR-MYLANLABS-2019M1106915

PATIENT
  Age: 72 Year
  Sex: Male
  Weight: 94 kg

DRUGS (13)
  1. ESIDREX [Concomitant]
     Active Substance: HYDROCHLOROTHIAZIDE
  2. PREVISCAN                          /00261401/ [Concomitant]
     Active Substance: PENTOXIFYLLINE
  3. ALLOPURINOL. [Concomitant]
     Active Substance: ALLOPURINOL
  4. DIFFU K [Concomitant]
     Active Substance: POTASSIUM CHLORIDE
     Dosage: UNK
  5. AMIODARONE [Concomitant]
     Active Substance: AMIODARONE
  6. ZOPICLONE [Concomitant]
     Active Substance: ZOPICLONE
  7. SPIRONOLACTONE. [Suspect]
     Active Substance: SPIRONOLACTONE
     Indication: CARDIAC FAILURE
     Dosage: 25 MILLIGRAM, QOD
     Route: 048
     Dates: start: 20190318, end: 20190506
  8. NEBIVOLOL. [Concomitant]
     Active Substance: NEBIVOLOL
     Dosage: UNK
  9. ALPRAZOLAM. [Concomitant]
     Active Substance: ALPRAZOLAM
  10. FUROSEMIDE. [Concomitant]
     Active Substance: FUROSEMIDE
  11. REPAGLINIDE. [Concomitant]
     Active Substance: REPAGLINIDE
  12. PAROXETINE. [Concomitant]
     Active Substance: PAROXETINE
  13. ESOMEPRAZOLE. [Concomitant]
     Active Substance: ESOMEPRAZOLE MAGNESIUM

REACTIONS (1)
  - Vascular purpura [Recovering/Resolving]

NARRATIVE: CASE EVENT DATE: 20190415
